FAERS Safety Report 17876401 (Version 2)
Quarter: 2020Q3

REPORT INFORMATION
  Report Type: Report from Study
  Country: GB (occurrence: GB)
  Receive Date: 20200609
  Receipt Date: 20200619
  Transmission Date: 20201105
  Serious: Yes (Death, Life-Threatening, Other)
  Sender: FDA-Public Use
  Company Number: GB-ALEXION PHARMACEUTICALS INC.-A202007754

PATIENT
  Age: 65 Year
  Sex: Female
  Weight: 64 kg

DRUGS (15)
  1. PARACETAMOL [Concomitant]
     Active Substance: ACETAMINOPHEN
     Indication: PYREXIA
     Route: 042
     Dates: start: 20200528
  2. RAVULIZUMAB. [Suspect]
     Active Substance: RAVULIZUMAB
     Dosage: 900 MG, UNK
     Route: 042
     Dates: start: 20200603
  3. RAVULIZUMAB. [Suspect]
     Active Substance: RAVULIZUMAB
     Dosage: UNK
     Route: 042
  4. ENOXAPARIN SODIUM. [Concomitant]
     Active Substance: ENOXAPARIN SODIUM
     Indication: THROMBOSIS PROPHYLAXIS
     Dosage: 40 MG, UNK
     Route: 058
     Dates: start: 20200528, end: 20200529
  5. RAVULIZUMAB. [Suspect]
     Active Substance: RAVULIZUMAB
     Indication: COVID-19 TREATMENT
     Dosage: 2700 MG, UNK
     Route: 042
     Dates: start: 20200530
  6. PENICILLIN                         /00000901/ [Concomitant]
     Active Substance: PENICILLIN G
     Indication: PROPHYLAXIS
     Route: 065
  7. SENNOSIDE                          /00571901/ [Concomitant]
     Active Substance: SENNOSIDES A AND B
     Indication: CONSTIPATION
     Route: 050
     Dates: start: 20200531
  8. ZOPICLONE [Concomitant]
     Active Substance: ZOPICLONE
     Indication: INSOMNIA
     Route: 048
     Dates: start: 20200529, end: 20200601
  9. MORPHINE SULFATE. [Concomitant]
     Active Substance: MORPHINE SULFATE
     Indication: BACK PAIN
     Route: 048
     Dates: start: 20200528, end: 20200531
  10. CHLORHEXIDINE GLUCONATE. [Concomitant]
     Active Substance: CHLORHEXIDINE GLUCONATE
     Dosage: UNK
     Route: 061
     Dates: start: 20200528
  11. SANDO K                            /00209301/ [Concomitant]
     Active Substance: POTASSIUM BICARBONATE\POTASSIUM CHLORIDE
     Indication: HYPOKALAEMIA
     Dosage: 2 DF, UNK
     Route: 048
     Dates: start: 20200528, end: 20200602
  12. ENOXAPARIN SODIUM. [Concomitant]
     Active Substance: ENOXAPARIN SODIUM
     Dosage: 40 MG, UNK
     Route: 058
     Dates: start: 20200529, end: 20200606
  13. CHLORHEXIDINE GLUCONATE. [Concomitant]
     Active Substance: CHLORHEXIDINE GLUCONATE
     Indication: PROPHYLAXIS
     Dosage: UNK
     Route: 061
     Dates: start: 20200528, end: 20200530
  14. CIPROFLOXACIN. [Concomitant]
     Active Substance: CIPROFLOXACIN
     Indication: PROPHYLAXIS
     Dosage: 500 MG, UNK
     Route: 048
     Dates: start: 20200530
  15. MUPIROCIN. [Concomitant]
     Active Substance: MUPIROCIN
     Indication: PROPHYLAXIS
     Route: 045
     Dates: start: 20200528, end: 20200601

REACTIONS (5)
  - Pneumonia [Not Recovered/Not Resolved]
  - Pulmonary embolism [Not Recovered/Not Resolved]
  - Brain herniation [Fatal]
  - Cerebral infarction [Fatal]
  - Thrombocytopenia [Not Recovered/Not Resolved]

NARRATIVE: CASE EVENT DATE: 20200531
